FAERS Safety Report 9643802 (Version 2)
Quarter: 2013Q4

REPORT INFORMATION
  Report Type: Spontaneous
  Country: US (occurrence: US)
  Receive Date: 20131024
  Receipt Date: 20131223
  Transmission Date: 20140711
  Serious: Yes (Hospitalization)
  Sender: FDA-Public Use
  Company Number: US-B.I. PHARMACEUTICALS,INC./RIDGEFIELD-2013-BI-33551BP

PATIENT
  Age: 74 Year
  Sex: Female

DRUGS (13)
  1. PRADAXA [Suspect]
     Indication: ATRIAL FIBRILLATION
     Dosage: 300 MG
     Route: 048
     Dates: start: 201211, end: 20131002
  2. ASPIRIN [Concomitant]
     Dosage: 81 MG
     Route: 048
  3. ATORVASTATIN [Concomitant]
     Indication: BLOOD CHOLESTEROL INCREASED
     Dosage: 40 MG
     Route: 048
  4. DIGOXIN [Concomitant]
     Dosage: 0.25 MG
     Route: 048
  5. CARDIZEM [Concomitant]
  6. GLIPIZIDE [Concomitant]
     Indication: DIABETES MELLITUS
     Dosage: 10 MG
     Route: 048
  7. LACTOBACILLUS [Concomitant]
     Route: 048
  8. LASIX [Concomitant]
     Indication: CARDIAC FAILURE CONGESTIVE
     Dosage: 80 MG
     Route: 048
  9. METOPROLOL [Concomitant]
     Dosage: 200 MG
     Route: 048
  10. POTASSIUM [Concomitant]
     Dosage: (TABLET) STRENGTH: 20 MEQ; DAILY DOSE: 40 MEQ
     Route: 048
  11. DIOVAN [Concomitant]
     Indication: HYPERTENSION
     Dosage: 40 MG
     Route: 048
  12. NITRO [Concomitant]
     Dosage: 0.4 MG
     Route: 048
  13. TYLENOL [Concomitant]
     Indication: ARTHRITIS
     Dosage: 650 MG
     Route: 048

REACTIONS (5)
  - Thrombosis [Not Recovered/Not Resolved]
  - Atrial thrombosis [Not Recovered/Not Resolved]
  - Atrial fibrillation [Not Recovered/Not Resolved]
  - Blood pressure increased [Recovered/Resolved]
  - Dizziness [Recovered/Resolved]
